FAERS Safety Report 4324130-8 (Version None)
Quarter: 2004Q1

REPORT INFORMATION
  Report Type: 
  Country: None (occurrence: None)
  Receive Date: 20040326
  Receipt Date: 20031222
  Transmission Date: 20041129
  Serious: No
  Sender: FDA-Public Use
  Company Number: US-GLAXOSMITHKLINE-A0444158A

PATIENT
  Age: 85 Year
  Sex: Female

DRUGS (6)
  1. ADVAIR DISKUS 100/50 [Suspect]
     Indication: ASTHMA
     Dosage: 250MCG TWICE PER DAY
     Route: 055
     Dates: start: 20010405
  2. VITAMIN A [Concomitant]
  3. VITAMIN B COMPLEX CAP [Concomitant]
  4. VITAMIN C [Concomitant]
  5. VITAMIN E [Concomitant]
  6. GLUCOSAMINE CHONDRITIN [Concomitant]

REACTIONS (2)
  - DRY SKIN [None]
  - PRURITUS [None]
